FAERS Safety Report 6956604-5 (Version None)
Quarter: 2010Q3

REPORT INFORMATION
  Report Type: 
  Country: None (occurrence: None)
  Receive Date: 20100830
  Receipt Date: 20100817
  Transmission Date: 20110219
  Serious: Yes (Hospitalization)
  Sender: FDA-Public Use
  Company Number: US-ELI_LILLY_AND_COMPANY-US201008006713

PATIENT
  Sex: Female

DRUGS (4)
  1. FORTEO [Suspect]
     Indication: OSTEOPOROSIS
     Dosage: 20 UG, DAILY (1/D)
     Dates: start: 20100201
  2. CALCIUM [Concomitant]
  3. VITAMIN D [Concomitant]
  4. MULTI-VITAMIN [Concomitant]

REACTIONS (4)
  - CARDIAC MURMUR [None]
  - COORDINATION ABNORMAL [None]
  - DYSKINESIA [None]
  - HYPOAESTHESIA [None]
